FAERS Safety Report 10514283 (Version 1)
Quarter: 2014Q4

REPORT INFORMATION
  Report Type: Spontaneous
  Country: US (occurrence: US)
  Receive Date: 20141013
  Receipt Date: 20141013
  Transmission Date: 20150528
  Serious: Yes (Death, Other)
  Sender: FDA-Public Use
  Company Number: US-MYLANLABS-2014M1006877

PATIENT

DRUGS (3)
  1. MELOXICAM. [Interacting]
     Active Substance: MELOXICAM
     Route: 065
  2. METHOTREXATE [Suspect]
     Active Substance: METHOTREXATE
     Dosage: WEEKLY
     Route: 065
  3. OMEPRAZOLE. [Interacting]
     Active Substance: OMEPRAZOLE
     Route: 065

REACTIONS (6)
  - Renal impairment [Fatal]
  - Pancytopenia [Not Recovered/Not Resolved]
  - Drug interaction [Not Recovered/Not Resolved]
  - Toxicity to various agents [Fatal]
  - Psoriasis [Fatal]
  - Skin erosion [Fatal]
